FAERS Safety Report 9732654 (Version 1)
Quarter: 2013Q4

REPORT INFORMATION
  Report Type: Spontaneous
  Country: US (occurrence: None)
  Receive Date: 20131204
  Receipt Date: 20131204
  Transmission Date: 20140711
  Serious: Yes (Hospitalization)
  Sender: FDA-Public Use
  Company Number: None

PATIENT
  Age: 64 Year
  Sex: Male
  Weight: 83 kg

DRUGS (3)
  1. RIVAROXABAN [Suspect]
     Indication: ATRIAL FIBRILLATION
     Dosage: 1 PILL, QD, ORAL
     Route: 048
  2. CLOPIDOGREL 75 MG [Concomitant]
  3. ASA [Concomitant]

REACTIONS (1)
  - Rectal haemorrhage [None]
